FAERS Safety Report 7139584-1 (Version None)
Quarter: 2010Q4

REPORT INFORMATION
  Report Type: 
  Country: None (occurrence: None)
  Receive Date: 20101206
  Receipt Date: 20101124
  Transmission Date: 20110411
  Serious: Yes (Hospitalization)
  Sender: FDA-Public Use
  Company Number: CA-ELI_LILLY_AND_COMPANY-CA201009007594

PATIENT
  Age: 86 Year
  Sex: Female

DRUGS (12)
  1. FORTEO [Suspect]
     Indication: OSTEOPOROSIS
     Dosage: 20 UG, DAILY (1/D)
     Route: 058
     Dates: start: 20091007, end: 20100203
  2. FORTEO [Suspect]
     Dosage: 20 UG, DAILY (1/D)
     Route: 058
     Dates: start: 20100303, end: 20100824
  3. FORTEO [Suspect]
     Dosage: 20 UG, DAILY (1/D)
     Route: 058
     Dates: start: 20100827
  4. AMLODIPINE [Concomitant]
     Dosage: 5 MG, 2/D
  5. RAMIPRIL [Concomitant]
     Dosage: 5 MG, 2/D
  6. LIPITOR [Concomitant]
  7. ASPIRIN [Concomitant]
  8. VITALUX [Concomitant]
  9. CALCIPLEX D [Concomitant]
     Dosage: 1500 MG, DAILY (1/D)
  10. VITAMIN D [Concomitant]
     Dosage: 2000 IU, DAILY (1/D)
  11. LORAZEPAM [Concomitant]
     Dosage: 1 MG, AS NEEDED
  12. TRIDURAL [Concomitant]
     Dosage: 100 MG, UNK

REACTIONS (6)
  - APHAGIA [None]
  - CONTUSION [None]
  - FALL [None]
  - FOOT FRACTURE [None]
  - PAIN IN EXTREMITY [None]
  - PYREXIA [None]
